FAERS Safety Report 20058302 (Version 1)
Quarter: 2021Q4

REPORT INFORMATION
  Report Type: Report from Study
  Country: US (occurrence: US)
  Receive Date: 20211111
  Receipt Date: 20211111
  Transmission Date: 20220303
  Serious: No
  Sender: FDA-Public Use
  Company Number: US-KYOWAKIRIN-2021BKK018796

PATIENT

DRUGS (1)
  1. CRYSVITA [Suspect]
     Active Substance: BUROSUMAB-TWZA
     Indication: Hereditary hypophosphataemic rickets
     Dosage: 10 MG, (1 ML ) EVERY 2 WEEKS
     Route: 058
     Dates: start: 202110

REACTIONS (3)
  - Thirst [Unknown]
  - Enuresis [Unknown]
  - Anxiety [Unknown]

NARRATIVE: CASE EVENT DATE: 20211001
